FAERS Safety Report 7208351-2 (Version None)
Quarter: 2011Q1

REPORT INFORMATION
  Report Type: 
  Country: None (occurrence: None)
  Receive Date: 20110104
  Receipt Date: 20101221
  Transmission Date: 20110831
  Serious: Yes (Other)
  Sender: FDA-Public Use
  Company Number: PHHY2010JP79204

PATIENT
  Sex: Male
  Weight: 58 kg

DRUGS (13)
  1. MYOCORIL [Concomitant]
     Indication: HYPERTENSION
     Dosage: UNK
     Route: 042
     Dates: start: 20100828, end: 20100829
  2. ARTIST [Concomitant]
     Indication: HYPERTENSION
     Dosage: 2.5 MG
     Route: 048
     Dates: start: 20100901
  3. ARTIST [Concomitant]
     Dosage: 5 MG
     Route: 048
  4. PANSPORIN [Concomitant]
     Indication: URINARY TRACT INFECTION
     Dosage: 3 GRAM
     Dates: start: 20100909, end: 20100913
  5. PERDIPINE [Concomitant]
     Indication: HYPERTENSION
     Dosage: UNK
     Route: 042
     Dates: start: 20100828, end: 20100829
  6. OLMETEC [Concomitant]
     Indication: HYPERTENSION
     Dosage: 40 MG
     Route: 048
     Dates: start: 20100829, end: 20100906
  7. FLUITRAN [Concomitant]
     Dosage: 2 MG
     Route: 048
     Dates: end: 20100906
  8. RASILEZ [Suspect]
     Indication: HYPERTENSION
     Dosage: 300 MG DAILY
     Route: 048
     Dates: start: 20100903, end: 20100911
  9. CALBLOCK [Concomitant]
     Indication: HYPERTENSION
     Dosage: 16 MG
     Route: 048
     Dates: start: 20100906
  10. CO-DIOVAN [Concomitant]
     Indication: HYPERTENSION
     Dosage: 1 DF
     Route: 048
     Dates: start: 20100906
  11. FLUITRAN [Concomitant]
     Indication: HYPERTENSION
     Dosage: 1 MG
     Route: 048
     Dates: start: 20100901
  12. DIOVAN [Concomitant]
     Indication: HYPERTENSION
     Dosage: UNK
     Route: 048
     Dates: start: 20100908
  13. ATELEC [Concomitant]
     Indication: HYPERTENSION
     Dosage: 20 MG
     Route: 048
     Dates: start: 20100828, end: 20100906

REACTIONS (4)
  - URINARY TRACT INFECTION [None]
  - HEPATIC FUNCTION ABNORMAL [None]
  - BLOOD PRESSURE SYSTOLIC INCREASED [None]
  - BODY TEMPERATURE INCREASED [None]
